FAERS Safety Report 7630618-4 (Version None)
Quarter: 2011Q3

REPORT INFORMATION
  Report Type: 
  Country: None (occurrence: None)
  Receive Date: 20110722
  Receipt Date: 20110711
  Transmission Date: 20111222
  Serious: Yes (Hospitalization)
  Sender: FDA-Public Use
  Company Number: JP-PFIZER INC-2011145450

PATIENT
  Age: 72 Year
  Sex: Female
  Weight: 50.7 kg

DRUGS (13)
  1. TREPIBUTONE [Concomitant]
     Dosage: UNK
  2. GLUCOSE [Concomitant]
     Indication: PANCREATITIS
     Dosage: UNK
     Dates: start: 20110114, end: 20110116
  3. ASCORBIC ACID [Concomitant]
     Indication: BILE DUCT STONE
     Dosage: UNK
     Dates: start: 20110111, end: 20110117
  4. NEUROVITAN [Concomitant]
     Indication: DEFICIENCY ANAEMIA
     Dosage: UNK
     Dates: end: 20110128
  5. ATORVASTATIN CALCIUM [Suspect]
     Indication: HYPERCHOLESTEROLAEMIA
     Dosage: 10 MG, 1X/DAY
     Route: 048
     Dates: start: 20100921
  6. CEFOPERAZONE SODIUM [Concomitant]
     Indication: BILE DUCT STONE
     Dosage: 2 G DAILY
     Dates: start: 20110111, end: 20110116
  7. FOLIC ACID [Concomitant]
     Indication: DEFICIENCY ANAEMIA
     Dosage: UNK
     Dates: end: 20110128
  8. AMINO ACIDS/ELECTROLYTES/GLUCOSE/VITAMINS [Concomitant]
     Indication: BILE DUCT STONE
     Dosage: UNK
     Dates: start: 20110111, end: 20110111
  9. FLAVINE ADENINE DINUCLEOTIDE [Concomitant]
     Indication: BILE DUCT STONE
     Dosage: UNK
     Dates: start: 20110111, end: 20110117
  10. NAFAMOSTAT MESILATE [Concomitant]
     Indication: PANCREATITIS
     Dosage: UNK
     Dates: start: 20110114, end: 20110116
  11. AMLODIPINE [Concomitant]
     Indication: HYPERTENSION
     Dosage: UNK
  12. SUBVITAN [Concomitant]
     Indication: BILE DUCT STONE
     Dosage: UNK
     Dates: start: 20110111, end: 20110117
  13. URSO 250 [Concomitant]
     Dosage: UNK

REACTIONS (3)
  - HEPATIC FUNCTION ABNORMAL [None]
  - PANCREATITIS [None]
  - BILE DUCT STONE [None]
